FAERS Safety Report 15807878 (Version 3)
Quarter: 2019Q1

REPORT INFORMATION
  Report Type: Spontaneous
  Country: DE (occurrence: DE)
  Receive Date: 20190110
  Receipt Date: 20190124
  Transmission Date: 20190417
  Serious: Yes (Death, Hospitalization)
  Sender: FDA-Public Use
  Company Number: DE-ASTRAZENECA-2019SE04674

PATIENT
  Age: 81 Year
  Sex: Female

DRUGS (7)
  1. TICAGRELOR. [Suspect]
     Active Substance: TICAGRELOR
     Indication: ANTIPLATELET THERAPY
     Dosage: 180.0MG UNKNOWN
     Route: 048
  2. TIROFIBAN [Interacting]
     Active Substance: TIROFIBAN
     Indication: ANTICOAGULANT THERAPY
     Dosage: 0.15 MICROGRAMS PER KILOGRAM FOR 18 HOURS
     Route: 042
  3. TIROFIBAN [Interacting]
     Active Substance: TIROFIBAN
     Indication: ANTICOAGULANT THERAPY
     Dosage: 25 MICROGRAMS PER KILOGRAM ADMINISTERED ONCE FOR 3 MINUTES
     Route: 040
  4. ASPIRIN. [Interacting]
     Active Substance: ASPIRIN
     Indication: ANTIPLATELET THERAPY
     Dosage: 250.0MG UNKNOWN
     Route: 042
  5. HEPARIN [Concomitant]
     Active Substance: HEPARIN SODIUM
     Route: 065
  6. TRANEXAMIC ACID. [Concomitant]
     Active Substance: TRANEXAMIC ACID
     Route: 065
  7. NOREPINEPHRINE. [Concomitant]
     Active Substance: NOREPINEPHRINE
     Route: 065

REACTIONS (2)
  - Thrombocytopenia [Fatal]
  - Potentiating drug interaction [Fatal]
